FAERS Safety Report 25407676 (Version 1)
Quarter: 2025Q2

REPORT INFORMATION
  Report Type: Spontaneous
  Country: US (occurrence: None)
  Receive Date: 20250605
  Receipt Date: 20250605
  Transmission Date: 20250717
  Serious: Yes (Life-Threatening, Hospitalization)
  Sender: FDA-CTU
  Company Number: None

PATIENT
  Age: 57 Year
  Sex: Male
  Weight: 98.55 kg

DRUGS (1)
  1. COBENFY [Suspect]
     Active Substance: TROSPIUM CHLORIDE\XANOMELINE
     Indication: Schizophrenia
     Dosage: FREQUENCY : TWICE A DAY;?
     Route: 048
     Dates: start: 20250430, end: 20250523

REACTIONS (1)
  - Volvulus [None]

NARRATIVE: CASE EVENT DATE: 20250523
